FAERS Safety Report 5840123-3 (Version None)
Quarter: 2008Q3

REPORT INFORMATION
  Report Type: 
  Country: None (occurrence: None)
  Receive Date: 20080730
  Receipt Date: 20080425
  Transmission Date: 20090109
  Serious: No
  Sender: FDA-Public Use
  Company Number: PHEH2008US03937

PATIENT
  Sex: Female

DRUGS (1)
  1. TEKTURNA [Suspect]
     Indication: HYPERTENSION
     Dosage: 150 MG

REACTIONS (7)
  - BLOOD PRESSURE INADEQUATELY CONTROLLED [None]
  - DIZZINESS [None]
  - DRUG INEFFECTIVE [None]
  - MALAISE [None]
  - NAUSEA [None]
  - PALPITATIONS [None]
  - TREMOR [None]
